FAERS Safety Report 25386470 (Version 1)
Quarter: 2025Q2

REPORT INFORMATION
  Report Type: Spontaneous
  Country: US (occurrence: None)
  Receive Date: 20250602
  Receipt Date: 20250602
  Transmission Date: 20250716
  Serious: Yes (unspecified)
  Sender: FDA-CTU
  Company Number: None

PATIENT
  Age: 60 Year
  Sex: Male
  Weight: 81 kg

DRUGS (1)
  1. EMPAGLIFLOZIN [Suspect]
     Active Substance: EMPAGLIFLOZIN
     Indication: Diabetes mellitus
     Dosage: FREQUENCY : DAILY;?
     Route: 048
     Dates: end: 20250424

REACTIONS (6)
  - Fistula [None]
  - Anal abscess [None]
  - White blood cell count increased [None]
  - Infection [None]
  - Streptococcus test positive [None]
  - Therapy cessation [None]

NARRATIVE: CASE EVENT DATE: 20250424
